FAERS Safety Report 5140211-3 (Version None)
Quarter: 2006Q4

REPORT INFORMATION
  Report Type: 
  Country: None (occurrence: None)
  Receive Date: 20061026
  Receipt Date: 20061026
  Transmission Date: 20070319
  Serious: Yes (Hospitalization)
  Sender: FDA-Public Use
  Company Number: None

PATIENT
  Age: 89 Year
  Sex: Female

DRUGS (1)
  1. DONEPEZIL HCL [Suspect]

REACTIONS (3)
  - ARRHYTHMIA [None]
  - HEART RATE ABNORMAL [None]
  - PALPITATIONS [None]
